FAERS Safety Report 10567931 (Version 1)
Quarter: 2014Q4

REPORT INFORMATION
  Report Type: Spontaneous
  Country: US (occurrence: None)
  Receive Date: 20141105
  Receipt Date: 20141105
  Transmission Date: 20150529
  Serious: Yes (Other)
  Sender: FDA-Public Use
  Company Number: None

PATIENT
  Age: 45 Year
  Sex: Male
  Weight: 117.94 kg

DRUGS (1)
  1. LAMICTAL [Suspect]
     Active Substance: LAMOTRIGINE
     Indication: BIPOLAR DISORDER
     Dosage: 1 PILL + 2 25 MG PILLS AT BEDTIME TAKEN BY MOUTH
     Route: 048
     Dates: start: 20140815, end: 20141103

REACTIONS (6)
  - Rash generalised [None]
  - Eye pruritus [None]
  - Ear pruritus [None]
  - Rash [None]
  - Rash pruritic [None]
  - Pruritus [None]

NARRATIVE: CASE EVENT DATE: 20141103
